FAERS Safety Report 24985615 (Version 1)
Quarter: 2025Q1

REPORT INFORMATION
  Report Type: Spontaneous
  Country: US (occurrence: None)
  Receive Date: 20250217
  Receipt Date: 20250217
  Transmission Date: 20250409
  Serious: Yes (unspecified)
  Sender: FDA-CTU
  Company Number: None

PATIENT

DRUGS (1)
  1. PARAGARD T 380A [Suspect]
     Active Substance: COPPER

REACTIONS (9)
  - Influenza like illness [None]
  - Headache [None]
  - Chills [None]
  - Back pain [None]
  - Neck pain [None]
  - Malaise [None]
  - Muscle spasms [None]
  - Vaginal discharge [None]
  - Complication associated with device [None]

NARRATIVE: CASE EVENT DATE: 20241220
